FAERS Safety Report 17689429 (Version 1)
Quarter: 2020Q2

REPORT INFORMATION
  Report Type: Spontaneous
  Country: US (occurrence: US)
  Receive Date: 20200420
  Receipt Date: 20200420
  Transmission Date: 20200714
  Serious: No
  Sender: FDA-Public Use
  Company Number: None

PATIENT
  Age: 63 Year
  Sex: Female
  Weight: 40.37 kg

DRUGS (1)
  1. FECAL TRANSPLANT [Suspect]
     Active Substance: FECAL MICROBIOTA
     Indication: PROBIOTIC THERAPY

REACTIONS (2)
  - Gastroenteritis Escherichia coli [None]
  - Therapeutic product ineffective [None]

NARRATIVE: CASE EVENT DATE: 20200323
